FAERS Safety Report 15457181 (Version 1)
Quarter: 2018Q4

REPORT INFORMATION
  Report Type: Spontaneous
  Country: DE (occurrence: DE)
  Receive Date: 20181002
  Receipt Date: 20181002
  Transmission Date: 20190204
  Serious: Yes (Life-Threatening, Hospitalization, Congenital Anomaly, Other)
  Sender: FDA-Public Use
  Company Number: DE-PFIZER INC-2018396114

PATIENT
  Sex: Male
  Weight: 3.45 kg

DRUGS (4)
  1. THYRONAJOD [Concomitant]
     Active Substance: LEVOTHYROXINE SODIUM\POTASSIUM IODIDE
     Indication: HYPOTHYROIDISM
     Dosage: DAILY (50 [?G/D (BIS 25) ] / 150 [?G/D ] FROM WEEK 5: INCREASED DOSE WITH 50 ?G/D)
     Route: 064
     Dates: start: 20100327, end: 20110106
  2. SERTRALINE HCL [Suspect]
     Active Substance: SERTRALINE HYDROCHLORIDE
     Indication: DEPRESSION
     Dosage: 150 MG, DAILY (100-0-50)
     Route: 064
     Dates: start: 20100512, end: 20110106
  3. PROMETHAZINE [Suspect]
     Active Substance: PROMETHAZINE\PROMETHAZINE HYDROCHLORIDE
     Indication: DEPRESSION
     Dosage: 60 MG, DAILY (30-0-30)
     Route: 064
     Dates: start: 20100327, end: 20110106
  4. FOL [Concomitant]
     Indication: PROPHYLAXIS OF NEURAL TUBE DEFECT
     Dosage: 0.4 MG, DAILY/ / -?
     Route: 064
     Dates: start: 20100327, end: 20100903

REACTIONS (3)
  - Neonatal respiratory distress [Recovered/Resolved]
  - Fallot^s tetralogy [Recovered/Resolved with Sequelae]
  - Maternal exposure during pregnancy [Unknown]

NARRATIVE: CASE EVENT DATE: 20110106
